FAERS Safety Report 8135480-1 (Version None)
Quarter: 2012Q1

REPORT INFORMATION
  Report Type: 
  Country: None (occurrence: None)
  Receive Date: 20120214
  Receipt Date: 20110901
  Transmission Date: 20120608
  Serious: Yes (Hospitalization)
  Sender: FDA-Public Use
  Company Number: JP-ROCHE-685603

PATIENT
  Sex: Female
  Weight: 69 kg

DRUGS (44)
  1. ACTEMRA [Suspect]
     Route: 041
     Dates: start: 20090928, end: 20100414
  2. PREDNISOLONE [Suspect]
     Route: 048
     Dates: start: 20090721, end: 20090724
  3. PREDNISOLONE [Suspect]
     Route: 048
     Dates: start: 20100507, end: 20100601
  4. CYCLOSPORINE [Suspect]
     Route: 042
     Dates: start: 20100601, end: 20100606
  5. FAMOTIDINE [Concomitant]
     Route: 048
  6. ONEALFA [Concomitant]
     Route: 048
  7. NORVASC [Concomitant]
     Route: 048
  8. ATARAX [Concomitant]
     Dosage: ROUTE; INJECTION (NOS)
     Route: 042
     Dates: start: 20090914, end: 20090914
  9. ACTEMRA [Suspect]
     Route: 041
     Dates: start: 20100520, end: 20100601
  10. PREDNISOLONE [Suspect]
     Route: 048
     Dates: start: 20091223, end: 20100119
  11. CYCLOSPORINE [Suspect]
     Indication: JUVENILE ARTHRITIS
     Dosage: FORM: INJECTIONROUTE: INTRAVENOUS (NOT OTHERWISE SPECIFIED)
     Route: 042
     Dates: start: 20090726, end: 20090808
  12. ACTEMRA [Suspect]
     Route: 041
     Dates: start: 20100506, end: 20100506
  13. ACTEMRA [Suspect]
     Route: 041
     Dates: start: 20100614, end: 20100629
  14. ACTEMRA [Suspect]
     Route: 041
     Dates: start: 20100715, end: 20110101
  15. PREDNISOLONE [Suspect]
     Route: 048
     Dates: start: 20090804, end: 20090814
  16. PREDNISOLONE [Suspect]
     Route: 048
     Dates: start: 20090818, end: 20090831
  17. PREDNISOLONE [Suspect]
     Route: 048
     Dates: start: 20091029, end: 20091110
  18. SOLU-CORTEF [Concomitant]
     Dosage: ROUTE; INJECTION (NOS)
     Route: 042
     Dates: start: 20090928, end: 20090928
  19. PREDNISOLONE [Suspect]
     Route: 048
     Dates: start: 20090815, end: 20090817
  20. PREDNISOLONE [Suspect]
     Route: 048
     Dates: start: 20091014, end: 20091028
  21. PREDNISOLONE [Suspect]
     Route: 048
     Dates: start: 20091111, end: 20091125
  22. DEXAMETHASONE PALMITATE [Suspect]
     Indication: JUVENILE ARTHRITIS
     Dosage: DRUG NAME: LIMETHASON
     Route: 041
     Dates: start: 20100601, end: 20100603
  23. PREDNISOLONE [Suspect]
     Route: 048
     Dates: start: 20090703, end: 20090713
  24. PREDNISOLONE [Suspect]
     Route: 048
     Dates: start: 20091126, end: 20091208
  25. PREDNISOLONE [Suspect]
     Route: 048
     Dates: start: 20100120, end: 20100217
  26. PREDNISOLONE [Suspect]
     Route: 048
     Dates: start: 20100610, end: 20100715
  27. ACTEMRA [Suspect]
     Indication: JUVENILE ARTHRITIS
     Route: 041
     Dates: start: 20090817, end: 20090831
  28. ACTEMRA [Suspect]
     Route: 041
  29. PREDNISOLONE [Suspect]
     Route: 048
     Dates: start: 20090901, end: 20090914
  30. PREDNISOLONE [Suspect]
     Route: 048
     Dates: start: 20090929, end: 20091013
  31. PREDNISOLONE [Suspect]
     Route: 048
     Dates: start: 20100218, end: 20100316
  32. PREDNISOLONE [Suspect]
     Route: 048
     Dates: start: 20100716, end: 20100813
  33. CYCLOSPORINE [Suspect]
     Route: 048
     Dates: start: 20090809, end: 20090817
  34. SOLU-CORTEF [Concomitant]
     Dosage: ROUTE; INJECTION (NOS)
     Route: 042
     Dates: start: 20090914, end: 20090914
  35. PREDNISOLONE [Suspect]
     Indication: JUVENILE ARTHRITIS
     Route: 048
  36. PREDNISOLONE [Suspect]
     Route: 048
     Dates: start: 20090915, end: 20090928
  37. PREDNISOLONE [Suspect]
     Route: 048
     Dates: start: 20100317, end: 20100506
  38. PREDNISOLONE [Suspect]
     Route: 048
  39. CYCLOSPORINE [Suspect]
     Route: 048
     Dates: start: 20090818, end: 20090928
  40. NORVASC [Concomitant]
     Route: 048
     Dates: start: 20090803, end: 20091110
  41. ACTEMRA [Suspect]
     Route: 041
     Dates: start: 20090914, end: 20090914
  42. PREDNISOLONE [Suspect]
     Route: 048
     Dates: start: 20091209, end: 20091222
  43. NORVASC [Concomitant]
     Route: 048
     Dates: start: 20090719, end: 20090802
  44. LISINOPRIL [Concomitant]
     Route: 048

REACTIONS (5)
  - SUBCUTANEOUS ABSCESS [None]
  - HYPERTENSION [None]
  - THERMAL BURN [None]
  - HISTIOCYTOSIS HAEMATOPHAGIC [None]
  - IMPAIRED HEALING [None]
